FAERS Safety Report 7681715-9 (Version None)
Quarter: 2011Q3

REPORT INFORMATION
  Report Type: 
  Country: None (occurrence: None)
  Receive Date: 20110812
  Receipt Date: 20110728
  Transmission Date: 20111222
  Serious: Yes (Hospitalization)
  Sender: FDA-Public Use
  Company Number: FR-WATSON-2011-12453

PATIENT
  Age: 24 Year
  Sex: Female

DRUGS (1)
  1. DIVALPROEX SODIUM [Suspect]
     Indication: SUICIDE ATTEMPT
     Dosage: UNK

REACTIONS (5)
  - TOXICITY TO VARIOUS AGENTS [None]
  - ENCEPHALOPATHY [None]
  - STATUS EPILEPTICUS [None]
  - LACTIC ACIDOSIS [None]
  - BICYTOPENIA [None]
